FAERS Safety Report 20152142 (Version 2)
Quarter: 2022Q2

REPORT INFORMATION
  Report Type: Spontaneous
  Country: HU (occurrence: HU)
  Receive Date: 20211206
  Receipt Date: 20220617
  Transmission Date: 20220721
  Serious: Yes (Other)
  Sender: FDA-Public Use
  Company Number: HU-JNJFOC-20211129546

PATIENT
  Age: 72 Year
  Sex: Male

DRUGS (7)
  1. RITUXIMAB [Suspect]
     Active Substance: RITUXIMAB
     Dosage: UNK
     Route: 065
     Dates: start: 201602
  2. VENETOCLAX [Suspect]
     Active Substance: VENETOCLAX
     Dosage: UNK
     Route: 065
     Dates: start: 202009
  3. IMBRUVICA [Suspect]
     Active Substance: IBRUTINIB
     Indication: Chronic lymphocytic leukaemia
     Dosage: UNK
     Route: 048
     Dates: start: 201505
  4. IMBRUVICA [Suspect]
     Active Substance: IBRUTINIB
     Dosage: UNK
     Route: 065
     Dates: start: 201905
  5. SURAL [Concomitant]
     Indication: Bone tuberculosis
     Dosage: UNK
     Route: 065
     Dates: start: 201805
  6. RIFAMPIN [Concomitant]
     Active Substance: RIFAMPIN
     Indication: Bone tuberculosis
     Dosage: UNK
     Route: 065
     Dates: start: 201805
  7. PYRAZINAMIDE [Concomitant]
     Active Substance: PYRAZINAMIDE
     Indication: Bone tuberculosis
     Dosage: UNK
     Route: 065
     Dates: start: 201805

REACTIONS (4)
  - Squamous cell carcinoma [Unknown]
  - Ascites [Unknown]
  - Splenomegaly [Unknown]
  - Neoplasm progression [Unknown]
